FAERS Safety Report 11339757 (Version 1)
Quarter: 2015Q3

REPORT INFORMATION
  Report Type: Spontaneous
  Country: None (occurrence: None)
  Receive Date: 20150803
  Receipt Date: 20150803
  Transmission Date: 20151125
  Serious: Yes (Other)
  Sender: FDA-Public Use
  Company Number: None

PATIENT
  Age: 39 Year
  Sex: Male
  Weight: 96.8 kg

DRUGS (1)
  1. HARVONI [Suspect]
     Active Substance: LEDIPASVIR\SOFOSBUVIR
     Indication: HEPATITIS C
     Dosage: 90MG-400MG TABLET?DAILY?PO
     Route: 048
     Dates: start: 20150706

REACTIONS (2)
  - Suicidal ideation [None]
  - Schizoaffective disorder [None]

NARRATIVE: CASE EVENT DATE: 20150731
